FAERS Safety Report 9250836 (Version 5)
Quarter: 2014Q4

REPORT INFORMATION
  Report Type: Report from Study
  Country: DE (occurrence: DE)
  Receive Date: 20130424
  Receipt Date: 20141023
  Transmission Date: 20150529
  Serious: Yes (Hospitalization)
  Sender: FDA-Public Use
  Company Number: PHHY2013DE039847

PATIENT
  Sex: Male
  Weight: 105 kg

DRUGS (13)
  1. GLIMEPIRIDE. [Concomitant]
     Active Substance: GLIMEPIRIDE
     Indication: DIABETES MELLITUS
     Dosage: 2 MG, QD
     Route: 065
     Dates: start: 20120724, end: 20121009
  2. CLOMIPRAMIN SANDOZ [Concomitant]
     Indication: DEPRESSION
     Dosage: 300 MG, PER DAY
     Route: 065
     Dates: start: 2005
  3. ZOPICLONE [Concomitant]
     Active Substance: ZOPICLONE
     Indication: PERSONALITY DISORDER
  4. DAPAGLIFLOZIN [Concomitant]
     Active Substance: DAPAGLIFLOZIN
     Indication: DIABETES MELLITUS
     Dosage: 10 MG, PER DAY
     Route: 065
     Dates: start: 20130205
  5. PANTOPRAZOLE [Concomitant]
     Active Substance: PANTOPRAZOLE SODIUM
     Indication: REFLUX GASTRITIS
     Dosage: 40 MG, QD
     Route: 065
     Dates: start: 20060105
  6. METFORMIN, VILDAGLIPTIN [Suspect]
     Active Substance: METFORMIN\VILDAGLIPTIN
     Indication: TYPE 2 DIABETES MELLITUS
     Dosage: 1 DF, QD (2000 MG METF AND 100 MG VILD)
     Route: 065
     Dates: start: 20121009, end: 20121101
  7. BISOPROLOL [Concomitant]
     Active Substance: BISOPROLOL
     Indication: PRODUCT USED FOR UNKNOWN INDICATION
     Dosage: 5 MG, QD
  8. ZOPICLONE [Concomitant]
     Active Substance: ZOPICLONE
     Indication: BORDERLINE MENTAL IMPAIRMENT
     Dosage: 15 MG, QD
     Route: 065
     Dates: start: 2005
  9. ATARAX [Concomitant]
     Active Substance: HYDROXYZINE\HYDROXYZINE HYDROCHLORIDE
     Indication: BORDERLINE MENTAL IMPAIRMENT
     Dosage: 150 MG, PER DAY
     Dates: start: 20090831
  10. ATARAX [Concomitant]
     Active Substance: HYDROXYZINE\HYDROXYZINE HYDROCHLORIDE
     Indication: PERSONALITY DISORDER
  11. STARLIX [Suspect]
     Active Substance: NATEGLINIDE
     Indication: TYPE 2 DIABETES MELLITUS
     Dosage: 360 MG, UNK
     Route: 065
     Dates: start: 20060131
  12. ONGLYZA [Concomitant]
     Active Substance: SAXAGLIPTIN HYDROCHLORIDE
     Indication: DIABETES MELLITUS
     Dosage: 5 MG, PER DAY
     Route: 065
     Dates: start: 20121009
  13. CEFUROXIME. [Concomitant]
     Active Substance: CEFUROXIME
     Indication: WOUND INFECTION
     Dosage: 1000 MG, QD
     Route: 065
     Dates: start: 20130207, end: 20130213

REACTIONS (3)
  - Large intestine perforation [Recovered/Resolved]
  - Intervertebral disc degeneration [Not Recovered/Not Resolved]
  - Weight decreased [Unknown]

NARRATIVE: CASE EVENT DATE: 20130104
